FAERS Safety Report 25537421 (Version 1)
Quarter: 2025Q3

REPORT INFORMATION
  Report Type: Spontaneous
  Country: GB (occurrence: GB)
  Receive Date: 20250710
  Receipt Date: 20250710
  Transmission Date: 20251020
  Serious: Yes (Death)
  Sender: CELLTRION
  Company Number: GB-CELLTRION INC.-2025GB022119

PATIENT

DRUGS (1)
  1. YUFLYMA [Suspect]
     Active Substance: ADALIMUMAB-AATY
     Indication: Psoriatic arthropathy
     Dosage: 40 MG, INJECT ONE PRE-FILLED PEN EVERY TWO WEEKS (STOP DATE: JUL-2025)
     Route: 058
     Dates: start: 202505

REACTIONS (1)
  - Death [Fatal]
